FAERS Safety Report 20868976 (Version 1)
Quarter: 2022Q2

REPORT INFORMATION
  Report Type: Spontaneous
  Country: US (occurrence: US)
  Receive Date: 20220524
  Receipt Date: 20220524
  Transmission Date: 20220721
  Serious: Yes (Other)
  Sender: FDA-Public Use
  Company Number: US-BRISTOL-MYERS SQUIBB COMPANY-2022-039608

PATIENT
  Age: 56 Year
  Sex: Male
  Weight: 99.7 kg

DRUGS (1)
  1. REVLIMID [Suspect]
     Active Substance: LENALIDOMIDE
     Indication: Plasma cell myeloma
     Dosage: FOR 21 DAYS (7 DAYS OFF)
     Route: 048
     Dates: start: 20210415

REACTIONS (2)
  - Hernia [Unknown]
  - Diarrhoea [Unknown]
